FAERS Safety Report 23849890 (Version 2)
Quarter: 2024Q2

REPORT INFORMATION
  Report Type: Spontaneous
  Country: CA (occurrence: CA)
  Receive Date: 20240513
  Receipt Date: 20240515
  Transmission Date: 20240716
  Serious: Yes (Other)
  Sender: FDA-Public Use
  Company Number: CA-Stemline Therapeutics, Inc.-2024ST002783

PATIENT
  Age: 8 Year
  Sex: Male

DRUGS (1)
  1. ELZONRIS [Suspect]
     Active Substance: TAGRAXOFUSP-ERZS
     Indication: Blastic plasmacytoid dendritic cell neoplasia
     Route: 042
     Dates: start: 20240412

REACTIONS (2)
  - Bell^s palsy [Not Recovered/Not Resolved]
  - Liver disorder [Recovered/Resolved]
